FAERS Safety Report 4709014-5 (Version None)
Quarter: 2005Q3

REPORT INFORMATION
  Report Type: 
  Country: None (occurrence: None)
  Receive Date: 20050707
  Receipt Date: 20050623
  Transmission Date: 20060218
  Serious: Yes (Hospitalization, Other)
  Sender: FDA-Public Use
  Company Number: 2005092237

PATIENT
  Age: 64 Year
  Weight: 81.6475 kg

DRUGS (2)
  1. GLUCOTROL [Suspect]
     Indication: DIABETES MELLITUS
     Dosage: (1 IN  1 D ),  ORAL
     Route: 048
  2. ALL OTHER THRAPEUTIC PRODUCTS (ALL OTHER THERAPEUTIC PRODUCTS) [Concomitant]

REACTIONS (6)
  - BLISTER [None]
  - CEREBROVASCULAR ACCIDENT [None]
  - PLEURAL EFFUSION [None]
  - POOR PERIPHERAL CIRCULATION [None]
  - SWELLING [None]
  - THROMBOSIS [None]
